FAERS Safety Report 14579529 (Version 1)
Quarter: 2018Q1

REPORT INFORMATION
  Report Type: Spontaneous
  Country: US (occurrence: US)
  Receive Date: 20180227
  Receipt Date: 20180227
  Transmission Date: 20180509
  Serious: Yes (Disabling)
  Sender: FDA-Public Use
  Company Number: None

PATIENT
  Age: 81 Year
  Sex: Male
  Weight: 74.84 kg

DRUGS (6)
  1. CILOSTAZOL TABLET 100MG [Suspect]
     Active Substance: CILOSTAZOL
     Indication: MUSCLE SPASMS
     Route: 048
     Dates: start: 20080201, end: 20180201
  2. AMLODIPINE [Concomitant]
     Active Substance: AMLODIPINE BESYLATE
  3. CARVEDILOL. [Concomitant]
     Active Substance: CARVEDILOL
  4. MULTI VITAMIN [Concomitant]
     Active Substance: VITAMINS
  5. CILOSTAZOL TABLET 100MG [Suspect]
     Active Substance: CILOSTAZOL
     Indication: PAIN
     Route: 048
     Dates: start: 20080201, end: 20180201
  6. BENAZEPRIL [Concomitant]
     Active Substance: BENAZEPRIL HYDROCHLORIDE

REACTIONS (4)
  - Hemiparesis [None]
  - Balance disorder [None]
  - Dysstasia [None]
  - Gait disturbance [None]

NARRATIVE: CASE EVENT DATE: 201702
